FAERS Safety Report 7979484-8 (Version None)
Quarter: 2011Q4

REPORT INFORMATION
  Report Type: 
  Country: None (occurrence: None)
  Receive Date: 20111129
  Receipt Date: 20111003
  Transmission Date: 20120403
  Serious: Yes (Other)
  Sender: FDA-Public Use
  Company Number: PHEH2011US03702

PATIENT
  Age: 68 Year
  Sex: Male

DRUGS (6)
  1. AFINITOR [Suspect]
     Indication: RENAL CELL CARCINOMA
     Dosage: 10 MG, UNK, ORAL 5 MG, UNK, ORAL
     Route: 048
  2. HYDROCHLOROTHIAZIDE [Concomitant]
  3. VITAMINS /00067501/ (ASCORBIC ACID, ERGOCALCIFEROL, NICOTINAMIDE, RETI [Concomitant]
  4. TAMSULOSIN HCL [Concomitant]
  5. CALCIUM CARBONATE [Concomitant]
  6. LISINOPRIL [Concomitant]

REACTIONS (5)
  - SWELLING FACE [None]
  - RETCHING [None]
  - CHOKING [None]
  - COUGH [None]
  - DRUG HYPERSENSITIVITY [None]
